FAERS Safety Report 10328154 (Version 4)
Quarter: 2014Q3

REPORT INFORMATION
  Report Type: Spontaneous
  Country: JP (occurrence: JP)
  Receive Date: 20140721
  Receipt Date: 20140930
  Transmission Date: 20150326
  Serious: Yes (Hospitalization, Other)
  Sender: FDA-Public Use
  Company Number: PHJP2014JP000971

PATIENT
  Age: 11 Year
  Sex: Female
  Weight: 25 kg

DRUGS (7)
  1. MIYA-BM [Concomitant]
     Active Substance: CLOSTRIDIUM BUTYRICUM SPORES STRAIN M-55
     Dosage: 1 DF, TID
     Route: 048
  2. SAWACILLIN [Concomitant]
     Active Substance: AMOXICILLIN
     Dosage: 250 MG, TID
     Route: 048
  3. TEGRETOL [Suspect]
     Active Substance: CARBAMAZEPINE
     Indication: CONVULSION PROPHYLAXIS
     Dosage: 0.18 G, BID
     Route: 048
     Dates: start: 201202, end: 20140714
  4. PANTETHINE SIOE [Concomitant]
     Dosage: 100 MG, QD
     Route: 048
  5. CALONAL [Concomitant]
     Active Substance: ACETAMINOPHEN
     Dosage: 300 MG, PRN
     Route: 048
  6. MAGMITT [Concomitant]
     Active Substance: MAGNESIUM OXIDE
     Indication: CONSTIPATION
     Dosage: 330 MG, QD
     Route: 048
     Dates: start: 20140704
  7. FERROSTEC [Concomitant]
     Dosage: 50 MG, QD
     Route: 048

REACTIONS (3)
  - Epistaxis [Unknown]
  - Cerebral haemorrhage [Recovered/Resolved with Sequelae]
  - Thrombocytopenic purpura [Recovering/Resolving]

NARRATIVE: CASE EVENT DATE: 20140621
